FAERS Safety Report 9454437 (Version 2)
Quarter: 2013Q4

REPORT INFORMATION
  Report Type: Spontaneous
  Country: US (occurrence: None)
  Receive Date: 20130808
  Receipt Date: 20131120
  Transmission Date: 20140711
  Serious: Yes (Other)
  Sender: FDA-Public Use
  Company Number: 20130379

PATIENT
  Age: 27 Year
  Sex: Male
  Weight: 71 kg

DRUGS (13)
  1. LEVETIRACETAM [Suspect]
     Indication: CONVULSION PROPHYLAXIS
     Dosage: 500 MG Q18-12 H + 1000
     Dates: start: 20130718, end: 20130728
  2. LEVETIRACETAM [Suspect]
     Indication: CEREBRAL HAEMORRHAGE
     Dosage: 500 MG Q18-12 H + 1000
     Dates: start: 20130718, end: 20130728
  3. LEVETIRACETAM [Suspect]
     Indication: CONVULSION PROPHYLAXIS
     Dosage: 500 MG Q8-12 H + 1000
  4. LEVETIRACETAM [Suspect]
     Indication: CEREBRAL HAEMORRHAGE
     Dosage: 500 MG Q8-12 H + 1000
  5. DEXAMETHASONE SODIUM PHOSPHATE INJECTION [Concomitant]
  6. FOSPHENYTOIN SODIUM INJECTION [Concomitant]
  7. TAMSULOSIN [Concomitant]
  8. NSS INFUSION [Concomitant]
  9. DOCUSATE [Concomitant]
  10. HYDROMORPHONE [Concomitant]
  11. IBUPROPHEN [Concomitant]
  12. FAMOTIDINE [Concomitant]
  13. LEVETIRACETAM [Suspect]
     Indication: CONVULSION PROPHYLAXIS
     Dosage: 500 MG Q8-12 H + 1000
     Dates: start: 20130718, end: 20130728

REACTIONS (6)
  - Convulsion [None]
  - Partial seizures [None]
  - Blood glucose increased [None]
  - Blood urea increased [None]
  - Product quality issue [None]
  - Product quality issue [None]
